FAERS Safety Report 8869707 (Version 1)
Quarter: 2012Q4

REPORT INFORMATION
  Report Type: Spontaneous
  Country: US (occurrence: None)
  Receive Date: 20121024
  Receipt Date: 20121024
  Transmission Date: 20130627
  Serious: Yes (Hospitalization)
  Sender: FDA-Public Use
  Company Number: 2012AP003414

PATIENT
  Age: 50 Year
  Sex: Male

DRUGS (1)
  1. MINOXIDIL [Suspect]
     Indication: INTENTIONAL USE BY INCORRECT ROUTE

REACTIONS (8)
  - Hypotension [None]
  - Nausea [None]
  - Vomiting [None]
  - Electrocardiogram ST-T change [None]
  - Tachycardia [None]
  - Intentional drug misuse [None]
  - Dizziness [None]
  - Alcohol withdrawal syndrome [None]
